FAERS Safety Report 12529759 (Version 1)
Quarter: 2016Q3

REPORT INFORMATION
  Report Type: Spontaneous
  Country: AT (occurrence: AT)
  Receive Date: 20160706
  Receipt Date: 20160706
  Transmission Date: 20161109
  Serious: Yes (Other)
  Sender: FDA-Public Use
  Company Number: AT-CIPLA LTD.-2016AT07952

PATIENT

DRUGS (5)
  1. CETUXIMAB [Suspect]
     Active Substance: CETUXIMAB
     Indication: GASTRIC CANCER
     Dosage: 400 MG/M2, WAS ADMINISTERED OVER 120 MINUTES
     Route: 042
  2. ATROPINE. [Concomitant]
     Active Substance: ATROPINE
     Indication: PROPHYLAXIS
     Dosage: 0.2 MG, UNK
     Route: 065
  3. IRINOTECAN [Suspect]
     Active Substance: IRINOTECAN
     Indication: GASTRIC CANCER
     Dosage: 125 MG/M2, WAS DILUTED IN 0.9% NACL AND ADMINISTERED I.V. OVER 30 MIN, BIWEEKLY
     Route: 042
  4. OXALIPLATIN. [Suspect]
     Active Substance: OXALIPLATIN
     Indication: GASTRIC CANCER
     Dosage: 85 MG/M2, DILUTED IN 5% DEXTROSE ADMINISTERED OVER TWO HOURS, BIWEEKLY
     Route: 042
  5. CETUXIMAB [Suspect]
     Active Substance: CETUXIMAB
     Dosage: 250 MG/M2, ADMINISTERED OVER 60 MINUTES WERE GIVEN EVERY 7 DAYS
     Route: 042

REACTIONS (1)
  - Disease progression [Unknown]
